FAERS Safety Report 16472777 (Version 1)
Quarter: 2019Q2

REPORT INFORMATION
  Report Type: Other
  Country: CA (occurrence: CA)
  Receive Date: 20190625
  Receipt Date: 20190625
  Transmission Date: 20190711
  Serious: Yes (Hospitalization, Disabling, Other)
  Sender: FDA-Public Use
  Company Number: CA-APOTEX-2019AP016881

PATIENT
  Sex: Male

DRUGS (2)
  1. IMATINIB. [Suspect]
     Active Substance: IMATINIB MESYLATE
     Indication: CHRONIC GRAFT VERSUS HOST DISEASE
     Dosage: UNK, QD
     Route: 048
  2. CYCLOSPORINE. [Suspect]
     Active Substance: CYCLOSPORINE
     Indication: CHRONIC GRAFT VERSUS HOST DISEASE
     Dosage: UNK, BID
     Route: 048

REACTIONS (8)
  - Cerebrovascular accident [Recovering/Resolving]
  - Motor dysfunction [Recovering/Resolving]
  - Aphasia [Recovering/Resolving]
  - Product use in unapproved indication [Recovering/Resolving]
  - Disorientation [Recovering/Resolving]
  - Confusional state [Recovering/Resolving]
  - Scleroderma [Recovering/Resolving]
  - Paraplegia [Recovering/Resolving]
